FAERS Safety Report 7531280-1 (Version None)
Quarter: 2011Q2

REPORT INFORMATION
  Report Type: 
  Country: None (occurrence: None)
  Receive Date: 20110531
  Receipt Date: 20110516
  Transmission Date: 20111010
  Serious: Yes (Hospitalization, Other)
  Sender: FDA-Public Use
  Company Number: 2011MA005440

PATIENT
  Age: 22 Year
  Sex: Female

DRUGS (2)
  1. BIPERIDEN HYDROCHLORIDE TAB [Concomitant]
  2. HALOPERIDOL LACTATE [Suspect]
     Indication: SCHIZOPHRENIA
     Dosage: 15 MG; INJ
     Route: 042

REACTIONS (9)
  - DELIRIUM [None]
  - URINARY INCONTINENCE [None]
  - LOGORRHOEA [None]
  - DISTURBANCE IN ATTENTION [None]
  - UNRESPONSIVE TO STIMULI [None]
  - NEUROLEPTIC MALIGNANT SYNDROME [None]
  - NO THERAPEUTIC RESPONSE [None]
  - AGGRESSION [None]
  - IMPULSIVE BEHAVIOUR [None]
